FAERS Safety Report 8160003-0 (Version None)
Quarter: 2012Q1

REPORT INFORMATION
  Report Type: 
  Country: None (occurrence: None)
  Receive Date: 20120223
  Receipt Date: 20120219
  Transmission Date: 20120608
  Serious: Yes (Other)
  Sender: FDA-Public Use
  Company Number: US-GLAXOSMITHKLINE-A0967019A

PATIENT
  Age: 9 Year
  Sex: Male

DRUGS (3)
  1. ALBUTEROL INHALER [Concomitant]
  2. ADVAIR DISKUS 100/50 [Suspect]
     Dosage: 2PUFF UNKNOWN
     Route: 055
  3. ALBUTEROL SULFATE [Concomitant]

REACTIONS (13)
  - HYPOXIC-ISCHAEMIC ENCEPHALOPATHY [None]
  - LEARNING DISABILITY [None]
  - ASPIRATION [None]
  - VENTRICULAR FIBRILLATION [None]
  - CARDIAC ARREST [None]
  - VOMITING [None]
  - VENTRICULAR TACHYCARDIA [None]
  - CARBON DIOXIDE INCREASED [None]
  - BRONCHOSPASM [None]
  - DYSPNOEA [None]
  - BLOOD PH DECREASED [None]
  - CHOREA [None]
  - CIRCULATORY COLLAPSE [None]
